FAERS Safety Report 23890100 (Version 2)
Quarter: 2024Q2

REPORT INFORMATION
  Report Type: Spontaneous
  Country: US (occurrence: US)
  Receive Date: 20240523
  Receipt Date: 20240620
  Transmission Date: 20240716
  Serious: No
  Sender: FDA-Public Use
  Company Number: US-SA-SAC20240516001076

PATIENT
  Age: 52 Year
  Sex: Female
  Weight: 89.35 kg

DRUGS (1)
  1. DUPIXENT [Suspect]
     Active Substance: DUPILUMAB
     Indication: Nasal polyps
     Dosage: 300 MG, QOW
     Route: 058
     Dates: start: 2022

REACTIONS (4)
  - Nasal congestion [Unknown]
  - Product dose omission issue [Unknown]
  - Nasal polyps [Unknown]
  - Condition aggravated [Unknown]
